FAERS Safety Report 7393506-7 (Version None)
Quarter: 2011Q2

REPORT INFORMATION
  Report Type: 
  Country: None (occurrence: None)
  Receive Date: 20110405
  Receipt Date: 20110328
  Transmission Date: 20111010
  Serious: Yes (Other)
  Sender: FDA-Public Use
  Company Number: US-US-EMD SERONO, INC.-7050753

PATIENT
  Sex: Male

DRUGS (2)
  1. REBIF [Suspect]
     Indication: PRODUCT USED FOR UNKNOWN INDICATION
     Route: 058
     Dates: start: 20090227
  2. MORPHINE PUMP [Concomitant]

REACTIONS (6)
  - ABASIA [None]
  - HEAD INJURY [None]
  - HEADACHE [None]
  - MOVEMENT DISORDER [None]
  - SKELETAL INJURY [None]
  - FALL [None]
